FAERS Safety Report 5132825-1 (Version None)
Quarter: 2006Q4

REPORT INFORMATION
  Report Type: 
  Country: None (occurrence: None)
  Receive Date: 20061023
  Receipt Date: 20061012
  Transmission Date: 20070319
  Serious: Yes (Hospitalization)
  Sender: FDA-Public Use
  Company Number: CG-MERCK-0610USA10239

PATIENT
  Age: 42 Year
  Sex: Male

DRUGS (2)
  1. STROMECTOL [Suspect]
     Route: 048
     Dates: start: 20060718, end: 20060718
  2. ALCOHOL [Concomitant]
     Route: 048
     Dates: start: 20060701

REACTIONS (9)
  - ABNORMAL BEHAVIOUR [None]
  - ARTHRALGIA [None]
  - ASTHENIA [None]
  - COMA [None]
  - CONJUNCTIVAL HAEMORRHAGE [None]
  - DIARRHOEA [None]
  - PYREXIA [None]
  - SPEECH DISORDER [None]
  - URINARY INCONTINENCE [None]
